FAERS Safety Report 7271223-1 (Version None)
Quarter: 2011Q1

REPORT INFORMATION
  Report Type: 
  Country: None (occurrence: None)
  Receive Date: 20110202
  Receipt Date: 20110124
  Transmission Date: 20110831
  Serious: Yes (Other)
  Sender: FDA-Public Use
  Company Number: IE-GILEAD-2011-0035685

PATIENT
  Age: 11 Month
  Sex: Female

DRUGS (2)
  1. VISTIDE [Suspect]
     Indication: ADENOVIRUS INFECTION
  2. CYCLOSPORINE [Concomitant]

REACTIONS (1)
  - DRUG RASH WITH EOSINOPHILIA AND SYSTEMIC SYMPTOMS [None]
